FAERS Safety Report 21397470 (Version 3)
Quarter: 2022Q4

REPORT INFORMATION
  Report Type: Report from Study
  Country: BR (occurrence: BR)
  Receive Date: 20220930
  Receipt Date: 20221027
  Transmission Date: 20230112
  Serious: Yes (Other)
  Sender: FDA-Public Use
  Company Number: BR-JNJFOC-20220863626

PATIENT
  Age: 42 Year
  Sex: Female

DRUGS (3)
  1. SIMPONI [Suspect]
     Active Substance: GOLIMUMAB
     Indication: Ankylosing spondylitis
     Route: 058
     Dates: start: 202205
  2. SIMPONI [Suspect]
     Active Substance: GOLIMUMAB
     Route: 058
     Dates: start: 20220509
  3. SIMPONI [Suspect]
     Active Substance: GOLIMUMAB
     Route: 058
     Dates: start: 20220913

REACTIONS (20)
  - Ankylosing spondylitis [Not Recovered/Not Resolved]
  - Contusion [Recovering/Resolving]
  - Ocular icterus [Unknown]
  - Blood urine present [Unknown]
  - Abdominal pain upper [Unknown]
  - Therapeutic response decreased [Unknown]
  - Haematoma [Unknown]
  - Oedema [Not Recovered/Not Resolved]
  - Ear inflammation [Unknown]
  - Cough [Recovering/Resolving]
  - Fatigue [Recovering/Resolving]
  - Product dose omission issue [Unknown]
  - Visual impairment [Unknown]
  - Accident [Unknown]
  - Presyncope [Unknown]
  - Fall [Unknown]
  - Nail disorder [Unknown]
  - Pyrexia [Recovering/Resolving]
  - Influenza [Unknown]
  - Haemoglobin decreased [Recovering/Resolving]

NARRATIVE: CASE EVENT DATE: 20220101
